FAERS Safety Report 18296617 (Version 1)
Quarter: 2020Q3

REPORT INFORMATION
  Report Type: Spontaneous
  Country: TR (occurrence: TR)
  Receive Date: 20200922
  Receipt Date: 20200922
  Transmission Date: 20201103
  Serious: Yes (Other)
  Sender: FDA-Public Use
  Company Number: TR-MYLANLABS-2020M1080865

PATIENT
  Age: 73 Year
  Sex: Male
  Weight: 105 kg

DRUGS (3)
  1. FONDAPARINUX MYLAN [Suspect]
     Active Substance: FONDAPARINUX
     Indication: THROMBOSIS
  2. FONDAPARINUX MYLAN [Suspect]
     Active Substance: FONDAPARINUX
     Indication: ARTERIAL THROMBOSIS
  3. FONDAPARINUX MYLAN [Suspect]
     Active Substance: FONDAPARINUX
     Indication: HEPARIN-INDUCED THROMBOCYTOPENIA
     Dosage: 7.5MG/0.6ML
     Route: 058

REACTIONS (2)
  - Drug ineffective for unapproved indication [Unknown]
  - Off label use [Unknown]
